FAERS Safety Report 6310845-9 (Version None)
Quarter: 2009Q3

REPORT INFORMATION
  Report Type: 
  Country: None (occurrence: None)
  Receive Date: 20090812
  Receipt Date: 20090804
  Transmission Date: 20100115
  Serious: No
  Sender: FDA-Public Use
  Company Number: 20097195

PATIENT
  Sex: Male

DRUGS (2)
  1. LIORESAL [Suspect]
     Indication: MUSCLE SPASTICITY
     Dosage: DAILY, INTRATHECAL
     Route: 037
  2. CLONIDINE [Concomitant]

REACTIONS (9)
  - HALLUCINATION [None]
  - INFLUENZA LIKE ILLNESS [None]
  - OVERDOSE [None]
  - PRODUCT QUALITY ISSUE [None]
  - REFUSAL OF TREATMENT BY PATIENT [None]
  - SCAR [None]
  - VOMITING [None]
  - WEIGHT DECREASED [None]
  - WRONG DRUG ADMINISTERED [None]
